FAERS Safety Report 6528526-5 (Version None)
Quarter: 2010Q1

REPORT INFORMATION
  Report Type: 
  Country: None (occurrence: None)
  Receive Date: 20100106
  Receipt Date: 20091230
  Transmission Date: 20100710
  Serious: Yes (Other)
  Sender: FDA-Public Use
  Company Number: US-BAYER-200941613NA

PATIENT

DRUGS (3)
  1. BETASERON [Suspect]
     Indication: MULTIPLE SCLEROSIS
     Route: 058
     Dates: start: 20070101, end: 20091001
  2. BETASERON [Suspect]
     Route: 058
     Dates: start: 20091201
  3. AMANTADINE HCL [Concomitant]
     Route: 065

REACTIONS (2)
  - IMPAIRED HEALING [None]
  - SKIN ULCER [None]
